FAERS Safety Report 4366935-3 (Version None)
Quarter: 2004Q2

REPORT INFORMATION
  Report Type: 
  Country: None (occurrence: None)
  Receive Date: 20040527
  Receipt Date: 20040527
  Transmission Date: 20050107
  Serious: Yes (Other)
  Sender: FDA-Public Use
  Company Number: None

PATIENT
  Age: 36 Year
  Sex: Female
  Weight: 58.9676 kg

DRUGS (4)
  1. MAXZIDE [Suspect]
     Dosage: 1 TABLET 1 PER DAY ORAL
     Route: 048
     Dates: start: 20040204, end: 20040304
  2. MAXZIDE [Suspect]
     Dosage: 1 TABLET 1 PER DAY ORAL
     Route: 048
     Dates: start: 20040423, end: 20040523
  3. PRINIVIL [Concomitant]
  4. EFFEXOR XR [Concomitant]

REACTIONS (3)
  - DRUG INEFFECTIVE [None]
  - FLUID RETENTION [None]
  - PHARMACEUTICAL PRODUCT COMPLAINT [None]
